FAERS Safety Report 5122867-4 (Version None)
Quarter: 2006Q4

REPORT INFORMATION
  Report Type: 
  Country: None (occurrence: None)
  Receive Date: 20061004
  Receipt Date: 20061004
  Transmission Date: 20070319
  Serious: Yes (Hospitalization)
  Sender: FDA-Public Use
  Company Number: None

PATIENT
  Sex: Male

DRUGS (3)
  1. CARBOPLATIN [Suspect]
     Indication: SMALL CELL LUNG CANCER METASTATIC
     Dosage: DAY 1 Q21 DAYS  IV
     Route: 042
     Dates: start: 20060505, end: 20060816
  2. CPT-11 50 MG/M2 [Suspect]
     Indication: SMALL CELL LUNG CANCER METASTATIC
     Dosage: DAY 1, 8 Q2 DAYS IV
     Route: 042
     Dates: start: 20060505, end: 20060816
  3. . [Concomitant]

REACTIONS (2)
  - DISEASE PROGRESSION [None]
  - DYSPNOEA [None]
